FAERS Safety Report 4471834-2 (Version None)
Quarter: 2004Q4

REPORT INFORMATION
  Report Type: 
  Country: None (occurrence: None)
  Receive Date: 20041006
  Receipt Date: 20040924
  Transmission Date: 20050328
  Serious: Yes (Other)
  Sender: FDA-Public Use
  Company Number: 2004-BP-08637RO

PATIENT
  Age: 40 Year
  Sex: Female

DRUGS (5)
  1. LORAZEPAM INTENSOL [Suspect]
     Indication: SCHIZOPHRENIA
     Dosage: 0.5 MG X 3 DOSES (0.5 MG, 3 IN 1 D), PO
     Route: 048
  2. QUETIAPINE (QUETIAPINE) [Concomitant]
  3. TRIMIPRAMINE MALEATE [Concomitant]
  4. PIPAMPERONE (PIPAMPERONE) [Concomitant]
  5. DIAZEPAM [Concomitant]

REACTIONS (5)
  - ATRIOVENTRICULAR BLOCK COMPLETE [None]
  - BLOOD CREATINE PHOSPHOKINASE INCREASED [None]
  - BLOOD CREATINE PHOSPHOKINASE MB INCREASED [None]
  - ELECTROCARDIOGRAM QT PROLONGED [None]
  - HEPATIC ENZYME INCREASED [None]
